FAERS Safety Report 11528280 (Version 1)
Quarter: 2015Q3

REPORT INFORMATION
  Report Type: Spontaneous
  Country: US (occurrence: US)
  Receive Date: 20150921
  Receipt Date: 20150921
  Transmission Date: 20151125
  Serious: No
  Sender: FDA-Public Use
  Company Number: US-ACTELION PHARMACEUTICALS US, INC.-A-NJ2015-112599

PATIENT
  Age: 68 Year
  Sex: Female

DRUGS (4)
  1. VENTAVIS [Suspect]
     Active Substance: ILOPROST
     Dosage: 2.5 MCG, UNK
     Route: 055
  2. VENTAVIS [Suspect]
     Active Substance: ILOPROST
     Indication: PRODUCT USED FOR UNKNOWN INDICATION
     Dosage: 5 MCG, UNK
     Route: 055
  3. ADCIRCA [Concomitant]
     Active Substance: TADALAFIL
  4. LETAIRIS [Suspect]
     Active Substance: AMBRISENTAN
     Indication: PRODUCT USED FOR UNKNOWN INDICATION
     Dosage: 10 MG, QD
     Route: 065
     Dates: start: 20141220

REACTIONS (10)
  - Headache [Unknown]
  - Fatigue [Unknown]
  - Oedema peripheral [Unknown]
  - Migraine [Unknown]
  - Fluid retention [Unknown]
  - Swelling [Unknown]
  - Abdominal distension [Unknown]
  - Pain in extremity [Unknown]
  - Oedema [Unknown]
  - Dyspnoea [Unknown]
